FAERS Safety Report 5265174-1 (Version None)
Quarter: 2007Q1

REPORT INFORMATION
  Report Type: 
  Country: None (occurrence: None)
  Receive Date: 20061121
  Receipt Date: 20060927
  Transmission Date: 20070707
  Serious: No
  Sender: FDA-Public Use
  Company Number: TPA2006A01676

PATIENT
  Age: 25 Year
  Sex: Male
  Weight: 87.9978 kg

DRUGS (4)
  1. ROZEREM [Suspect]
     Indication: INSOMNIA
     Dosage: 8 MG, QHS, PER ORAL
     Route: 048
     Dates: start: 20060101
  2. LEXAPRO [Suspect]
     Dates: end: 20060101
  3. KLONOPIN [Concomitant]
  4. AMOXICILLIN [Concomitant]

REACTIONS (3)
  - DRUG INEFFECTIVE [None]
  - INITIAL INSOMNIA [None]
  - LIBIDO DECREASED [None]
